FAERS Safety Report 7035322-1 (Version None)
Quarter: 2010Q4

REPORT INFORMATION
  Report Type: 
  Country: None (occurrence: None)
  Receive Date: 20101008
  Receipt Date: 20101006
  Transmission Date: 20110411
  Serious: Yes (Other)
  Sender: FDA-Public Use
  Company Number: B0677814A

PATIENT
  Age: 1 Month

DRUGS (1)
  1. ZANTAC [Suspect]
     Route: 048
     Dates: start: 20100101, end: 20100101

REACTIONS (5)
  - ASPHYXIA [None]
  - OFF LABEL USE [None]
  - ORAL DISORDER [None]
  - SALIVA ALTERED [None]
  - SALIVARY HYPERSECRETION [None]
